FAERS Safety Report 6138684-2 (Version None)
Quarter: 2009Q1

REPORT INFORMATION
  Report Type: 
  Country: None (occurrence: None)
  Receive Date: 20090331
  Receipt Date: 20090325
  Transmission Date: 20090719
  Serious: Yes (Other)
  Sender: FDA-Public Use
  Company Number: SE-WYE-G03400809

PATIENT
  Sex: Male

DRUGS (1)
  1. BENEFIX [Suspect]

REACTIONS (1)
  - DRUG EFFECT INCREASED [None]
